FAERS Safety Report 15753537 (Version 1)
Quarter: 2018Q4

REPORT INFORMATION
  Report Type: Report from Study
  Country: IT (occurrence: IT)
  Receive Date: 20181222
  Receipt Date: 20181222
  Transmission Date: 20190205
  Serious: Yes (Other)
  Sender: FDA-Public Use
  Company Number: IT-TEVA-2018-IT-989783

PATIENT
  Age: 55 Year
  Sex: Female

DRUGS (2)
  1. DELTACORTENE 5 MG COMPRESSE [Concomitant]
     Active Substance: PREDNISONE
  2. METHOTREXATE. [Suspect]
     Active Substance: METHOTREXATE
     Indication: ARTHRITIS REACTIVE
     Dosage: 10 MG
     Route: 058
     Dates: start: 20180127, end: 20181130

REACTIONS (1)
  - Therapy non-responder [Recovering/Resolving]

NARRATIVE: CASE EVENT DATE: 20181130
